FAERS Safety Report 17672438 (Version 1)
Quarter: 2020Q2

REPORT INFORMATION
  Report Type: Spontaneous
  Country: US (occurrence: US)
  Receive Date: 20200415
  Receipt Date: 20200415
  Transmission Date: 20200713
  Serious: No
  Sender: FDA-Public Use
  Company Number: US-ALKERMES INC.-ALK-2019-003891

PATIENT
  Age: 58 Year
  Sex: Female
  Weight: 60.32 kg

DRUGS (1)
  1. VIVITROL [Suspect]
     Active Substance: NALTREXONE
     Indication: ALCOHOLISM
     Dosage: 380 MG, QMO
     Route: 030
     Dates: start: 20190624

REACTIONS (9)
  - Peripheral swelling [Recovered/Resolved]
  - Injection site pain [Recovered/Resolved]
  - Road traffic accident [Recovered/Resolved]
  - Back pain [Recovered/Resolved]
  - Swelling [Not Recovered/Not Resolved]
  - Alcoholism [Not Recovered/Not Resolved]
  - Inappropriate schedule of product administration [Not Recovered/Not Resolved]
  - Pain in extremity [Recovered/Resolved]
  - Injection site reaction [Recovered/Resolved]

NARRATIVE: CASE EVENT DATE: 2019
